FAERS Safety Report 4846862-5 (Version None)
Quarter: 2005Q4

REPORT INFORMATION
  Report Type: 
  Country: None (occurrence: None)
  Receive Date: 20051207
  Receipt Date: 20050916
  Transmission Date: 20060501
  Serious: Yes (Hospitalization)
  Sender: FDA-Public Use
  Company Number: ES-BOEHRINGER INGELHEIM PHARMACEUTICALS, INC.-2005-ES-00264ES

PATIENT
  Sex: Male
  Weight: 67 kg

DRUGS (3)
  1. TIPRANAVIR + RITONAVIR CO-ADMIN [Suspect]
     Indication: HIV INFECTION
     Dosage: TIPRANAVIR 1000MG +  RITONAVIR 400MG.
     Route: 048
     Dates: start: 20050215, end: 20050914
  2. VIDEX [Concomitant]
     Indication: HIV INFECTION
     Route: 048
     Dates: start: 20050215, end: 20050914
  3. EPIVIR [Concomitant]
     Indication: HIV INFECTION
     Route: 048
     Dates: start: 20050215, end: 20050914

REACTIONS (2)
  - PULMONARY TUBERCULOSIS [None]
  - TREATMENT NONCOMPLIANCE [None]
